FAERS Safety Report 6236436-6 (Version None)
Quarter: 2009Q2

REPORT INFORMATION
  Report Type: 
  Country: None (occurrence: None)
  Receive Date: 20090619
  Receipt Date: 20090611
  Transmission Date: 20091009
  Serious: Yes (Other)
  Sender: FDA-Public Use
  Company Number: US-ASTRAZENECA-2009UW03749

PATIENT
  Age: 44 Year
  Sex: Male
  Weight: 127 kg

DRUGS (3)
  1. SEROQUEL [Suspect]
     Route: 048
  2. RISPERDAL [Concomitant]
  3. ZYPREXA [Concomitant]

REACTIONS (15)
  - ANGINA PECTORIS [None]
  - BLINDNESS TRANSIENT [None]
  - BLOOD CHOLESTEROL INCREASED [None]
  - CARDIAC DISORDER [None]
  - CARDIOVASCULAR DISORDER [None]
  - DIABETES MELLITUS [None]
  - DIABETIC COMA [None]
  - FATIGUE [None]
  - GASTROINTESTINAL DISORDER [None]
  - HEADACHE [None]
  - HYPERTENSION [None]
  - INFECTION [None]
  - PANCREATITIS [None]
  - SYNCOPE [None]
  - TOOTH LOSS [None]
